FAERS Safety Report 18480814 (Version 2)
Quarter: 2020Q4

REPORT INFORMATION
  Report Type: Spontaneous
  Country: US (occurrence: US)
  Receive Date: 20201109
  Receipt Date: 20201221
  Transmission Date: 20210114
  Serious: No
  Sender: FDA-Public Use
  Company Number: US-PFIZER INC-2020435842

PATIENT
  Age: 63 Year
  Sex: Female
  Weight: 71.2 kg

DRUGS (3)
  1. CLINDAMYCIN. [Suspect]
     Active Substance: CLINDAMYCIN
     Indication: BLISTER INFECTED
     Dosage: 300 MG, 3X/DAY
     Route: 048
  2. METRONIDAZOLE. [Suspect]
     Active Substance: METRONIDAZOLE
     Indication: BLISTER INFECTED
     Dosage: 500 MG, 3X/DAY
     Route: 048
  3. REMODULIN [Suspect]
     Active Substance: TREPROSTINIL
     Indication: PULMONARY ARTERIAL HYPERTENSION
     Dosage: 0.09 UG/KG
     Route: 041
     Dates: start: 20120416

REACTIONS (3)
  - Off label use [Unknown]
  - Diarrhoea [Unknown]
  - Blister infected [Unknown]
